FAERS Safety Report 16705608 (Version 1)
Quarter: 2019Q4

REPORT INFORMATION
  Report Type: Spontaneous
  Country: US (occurrence: US)
  Receive Date: 20190814
  Receipt Date: 20190814
  Transmission Date: 20200122
  Serious: No
  Sender: FDA-Public Use
  Company Number: None

PATIENT
  Sex: Male

DRUGS (7)
  1. ESCITALOPRAM 10MG [Concomitant]
     Active Substance: ESCITALOPRAM OXALATE
  2. MULTIVITAMIN [Concomitant]
     Active Substance: VITAMINS
  3. SYNTHROID [Concomitant]
     Active Substance: LEVOTHYROXINE SODIUM
  4. EPCLUSA [Suspect]
     Active Substance: SOFOSBUVIR\VELPATASVIR
     Indication: HEPATITIS C
     Route: 048
  5. PRAZOSIN 1MG [Concomitant]
  6. RISPERDAL 0.5MG [Concomitant]
  7. TRAZODONE [Concomitant]
     Active Substance: TRAZODONE HYDROCHLORIDE

REACTIONS (4)
  - Vomiting [None]
  - Nausea [None]
  - Abdominal discomfort [None]
  - Diarrhoea [None]
